FAERS Safety Report 6383037-5 (Version None)
Quarter: 2009Q3

REPORT INFORMATION
  Report Type: 
  Country: None (occurrence: None)
  Receive Date: 20090930
  Receipt Date: 20090924
  Transmission Date: 20100115
  Serious: Yes (Disabling, Other)
  Sender: FDA-Public Use
  Company Number: FI-ABBOTT-09P-055-0590075-00

PATIENT
  Sex: Male

DRUGS (11)
  1. HUMIRA [Suspect]
     Indication: RHEUMATOID ARTHRITIS
     Route: 058
     Dates: start: 20021201, end: 20030901
  2. REMICADE [Suspect]
     Indication: RHEUMATOID ARTHRITIS
     Route: 042
     Dates: start: 20011101, end: 20020701
  3. ENBREL [Suspect]
     Indication: RHEUMATOID ARTHRITIS
     Route: 058
     Dates: start: 20030909, end: 20031117
  4. TREXAN [Suspect]
     Indication: RHEUMATOID ARTHRITIS
     Route: 048
     Dates: start: 19910101, end: 20090716
  5. OXIKLORIN [Suspect]
     Indication: DRUG USE FOR UNKNOWN INDICATION
     Dates: start: 20021201, end: 20030901
  6. KINERET [Suspect]
     Indication: DRUG USE FOR UNKNOWN INDICATION
     Dates: start: 20031101, end: 20040201
  7. REUMACON [Suspect]
     Indication: DRUG USE FOR UNKNOWN INDICATION
     Dates: start: 20021201, end: 20090901
  8. CYCLOPHOSPHAMIDE [Concomitant]
     Indication: DRUG USE FOR UNKNOWN INDICATION
     Dates: start: 20040201, end: 20040801
  9. MABTHERA [Concomitant]
     Indication: DRUG USE FOR UNKNOWN INDICATION
     Dates: start: 20050101, end: 20060101
  10. MABTHERA [Concomitant]
     Dates: start: 20070101, end: 20070201
  11. MABTHERA [Concomitant]
     Dates: start: 20090701

REACTIONS (4)
  - CATARACT [None]
  - DRUG INEFFECTIVE [None]
  - OPTIC NEUROPATHY [None]
  - VISUAL ACUITY REDUCED [None]
